FAERS Safety Report 13371197 (Version 3)
Quarter: 2018Q2

REPORT INFORMATION
  Report Type: Spontaneous
  Country: IT (occurrence: IT)
  Receive Date: 20170324
  Receipt Date: 20180413
  Transmission Date: 20180711
  Serious: Yes (Other)
  Sender: FDA-Public Use
  Company Number: PHHY2017IT036451

PATIENT
  Age: 17 Year
  Sex: Male

DRUGS (2)
  1. CLARITHROMYCIN. [Suspect]
     Active Substance: CLARITHROMYCIN
     Indication: TONSILLITIS BACTERIAL
     Dosage: UNK UNK, QD
     Route: 048
  2. CEFIXORAL [Suspect]
     Active Substance: CEFIXIME
     Indication: TONSILLITIS BACTERIAL
     Dosage: UNK UNK, QD
     Route: 048

REACTIONS (2)
  - Erythema [Unknown]
  - Purpura [Unknown]

NARRATIVE: CASE EVENT DATE: 20161025
